FAERS Safety Report 8440216-0 (Version None)
Quarter: 2012Q2

REPORT INFORMATION
  Report Type: 
  Country: None (occurrence: None)
  Receive Date: 20120615
  Receipt Date: 20120611
  Transmission Date: 20120825
  Serious: No
  Sender: FDA-Public Use
  Company Number: US-PFIZER INC-2012140508

PATIENT
  Sex: Male

DRUGS (2)
  1. GABAPENTIN [Suspect]
     Dosage: 300 MG, UNK
     Route: 048
  2. GABAPENTIN [Suspect]
     Dosage: UNK

REACTIONS (3)
  - FATIGUE [None]
  - PHOBIA [None]
  - MYALGIA [None]
